FAERS Safety Report 5021339-5 (Version None)
Quarter: 2006Q2

REPORT INFORMATION
  Report Type: 
  Country: None (occurrence: None)
  Receive Date: 20060608
  Receipt Date: 20050819
  Transmission Date: 20061013
  Serious: No
  Sender: FDA-Public Use
  Company Number: US-BRISTOL-MYERS SQUIBB COMPANY-13084736

PATIENT

DRUGS (2)
  1. SINEMET [Suspect]
     Route: 048
  2. LAMISIL [Concomitant]

REACTIONS (1)
  - INSOMNIA [None]
